FAERS Safety Report 4417126-9 (Version None)
Quarter: 2004Q3

REPORT INFORMATION
  Report Type: 
  Country: None (occurrence: None)
  Receive Date: 20040806
  Receipt Date: 20040604
  Transmission Date: 20050211
  Serious: Yes (Hospitalization, Other)
  Sender: FDA-Public Use
  Company Number: JP-MERCK-0406USA00851

PATIENT
  Age: 60 Year
  Sex: Male

DRUGS (6)
  1. BROACT [Concomitant]
     Route: 042
     Dates: start: 20040524, end: 20040527
  2. TAGAMET [Concomitant]
     Route: 048
     Dates: end: 20040523
  3. RIVOTRIL [Concomitant]
     Route: 048
     Dates: start: 20040526
  4. DIAZEPAM [Concomitant]
     Route: 042
     Dates: start: 20040524, end: 20040527
  5. DIAZEPAM [Concomitant]
     Route: 048
     Dates: start: 20040523
  6. PEPCID [Suspect]
     Indication: GASTRIC ULCER
     Route: 048
     Dates: start: 20040523, end: 20040529

REACTIONS (4)
  - MULTI-ORGAN FAILURE [None]
  - PNEUMONIA [None]
  - RENAL FAILURE ACUTE [None]
  - RHABDOMYOLYSIS [None]
